FAERS Safety Report 10678291 (Version 1)
Quarter: 2014Q4

REPORT INFORMATION
  Report Type: Spontaneous
  Country: US (occurrence: None)
  Receive Date: 20141224
  Receipt Date: 20141224
  Transmission Date: 20150529
  Serious: Yes (Disabling)
  Sender: FDA-Public Use
  Company Number: None

PATIENT
  Age: 49 Year
  Sex: Male
  Weight: 90.72 kg

DRUGS (1)
  1. CIPROFLOXACIN. [Suspect]
     Active Substance: CIPROFLOXACIN
     Indication: EPIDIDYMITIS
     Dosage: 1 TWICE DAILY
     Route: 048
     Dates: start: 20141202, end: 20141216

REACTIONS (19)
  - Vision blurred [None]
  - Hypoaesthesia [None]
  - Lymphadenopathy [None]
  - Fatigue [None]
  - Gait disturbance [None]
  - Muscle twitching [None]
  - Disturbance in attention [None]
  - Visual impairment [None]
  - Abdominal pain upper [None]
  - Yellow skin [None]
  - Musculoskeletal discomfort [None]
  - Gastric disorder [None]
  - Balance disorder [None]
  - Testicular pain [None]
  - Paraesthesia [None]
  - Arthralgia [None]
  - Dyspnoea [None]
  - Musculoskeletal pain [None]
  - Chest pain [None]

NARRATIVE: CASE EVENT DATE: 20141204
